FAERS Safety Report 4735541-0 (Version None)
Quarter: 2005Q3

REPORT INFORMATION
  Report Type: 
  Country: None (occurrence: None)
  Receive Date: 20050802
  Receipt Date: 20050725
  Transmission Date: 20060218
  Serious: Yes (Death)
  Sender: FDA-Public Use
  Company Number: S05-USA-03620-01

PATIENT
  Age: 17 Year
  Sex: Female

DRUGS (1)
  1. CELEXA [Suspect]
     Indication: DEPRESSION
     Dosage: 20 MG PO
     Route: 048
     Dates: start: 20020101, end: 20030219

REACTIONS (11)
  - AGGRESSION [None]
  - AGITATION [None]
  - COMPLETED SUICIDE [None]
  - DEPRESSION [None]
  - DRUG INEFFECTIVE [None]
  - GUN SHOT WOUND [None]
  - HALLUCINATION [None]
  - INTENTIONAL SELF-INJURY [None]
  - MOOD SWINGS [None]
  - SOCIAL AVOIDANT BEHAVIOUR [None]
  - SUICIDAL IDEATION [None]
